FAERS Safety Report 6415478-1 (Version None)
Quarter: 2009Q4

REPORT INFORMATION
  Report Type: 
  Country: None (occurrence: None)
  Receive Date: 20091027
  Receipt Date: 20091016
  Transmission Date: 20100525
  Serious: Yes (Disabling, Other)
  Sender: FDA-Public Use
  Company Number: US-CELGENEUS-163-20785-09091536

PATIENT
  Sex: Female

DRUGS (2)
  1. THALOMID [Suspect]
     Indication: NEUROENDOCRINE CARCINOMA
     Route: 048
     Dates: start: 20090401, end: 20090401
  2. THALOMID [Suspect]
     Route: 048
     Dates: start: 20090701, end: 20090101

REACTIONS (2)
  - GENERAL PHYSICAL HEALTH DETERIORATION [None]
  - OESOPHAGEAL INFECTION [None]
